FAERS Safety Report 14835572 (Version 4)
Quarter: 2019Q1

REPORT INFORMATION
  Report Type: Spontaneous
  Country: FR (occurrence: IT)
  Receive Date: 20180502
  Receipt Date: 20190211
  Transmission Date: 20190417
  Serious: Yes (Hospitalization, Other)
  Sender: FDA-Public Use
  Company Number: FR-ACCORD-066367

PATIENT
  Age: 89 Year
  Sex: Female
  Weight: 55 kg

DRUGS (4)
  1. DIGOXIN. [Interacting]
     Active Substance: DIGOXIN
     Indication: TACHYARRHYTHMIA
     Dosage: 0.125 MG, DAILY?0.125 MG, QD?0.5 ABSENT, UNK
     Route: 048
     Dates: start: 20170111, end: 20170126
  2. FUROSEMIDE. [Suspect]
     Active Substance: FUROSEMIDE
     Indication: TACHYARRHYTHMIA
     Route: 065
  3. CORDARONE [Interacting]
     Active Substance: AMIODARONE HYDROCHLORIDE
     Indication: ATRIAL FIBRILLATION
     Dosage: 100 MG, BID
     Route: 065
     Dates: start: 20000101, end: 20170111
  4. APIXABAN [Interacting]
     Active Substance: APIXABAN
     Indication: CEREBROVASCULAR ACCIDENT PROPHYLAXIS
     Dosage: 2.5 MG, BID
     Route: 048
     Dates: start: 20170117

REACTIONS (7)
  - Toxicity to various agents [Unknown]
  - Overdose [Unknown]
  - Orthopnoea [Unknown]
  - Drug interaction [Unknown]
  - Tachyarrhythmia [Unknown]
  - Cardiac failure [Unknown]
  - Dyspnoea [Unknown]

NARRATIVE: CASE EVENT DATE: 20170124
